FAERS Safety Report 19028373 (Version 2)
Quarter: 2021Q2

REPORT INFORMATION
  Report Type: Spontaneous
  Country: DE (occurrence: DE)
  Receive Date: 20210319
  Receipt Date: 20210416
  Transmission Date: 20210717
  Serious: Yes (Hospitalization, Other)
  Sender: FDA-Public Use
  Company Number: DE-TEVA-2021-DE-1890951

PATIENT
  Age: 75 Year
  Sex: Female

DRUGS (12)
  1. ROTIGOTIN [Concomitant]
     Active Substance: ROTIGOTINE
     Dosage: 1 DOSAGE FORMS DAILY; 4 MG/D, 1?0?0?0,
     Route: 062
  2. TROSPIUM [Concomitant]
     Active Substance: TROSPIUM
     Dosage: 30 MILLIGRAM DAILY;  0.5?0?0.5?0
  3. CARBIDOPA/LEVODOPA [Concomitant]
     Active Substance: CARBIDOPA\LEVODOPA
     Dosage: 4 DOSAGE FORMS DAILY; ?25 | 100 MG, 1?1?1?1,
  4. ROTIGOTIN [Concomitant]
     Active Substance: ROTIGOTINE
     Dosage: 1 DOSAGE FORMS DAILY; 8 MG/D, 1?0?0?0
     Route: 062
  5. VALSARTAN. [Concomitant]
     Active Substance: VALSARTAN
     Dosage: UNIT DOSE :200 MG ,80 MG, 0.5?0?2?0,
  6. RIVASTIGMIN [Suspect]
     Active Substance: RIVASTIGMINE
     Dosage: 9.5 MILLIGRAM DAILY;  1?0?0?0
  7. DULOXETIN [Interacting]
     Active Substance: DULOXETINE
     Dosage: 30 MILLIGRAM DAILY;   1?0?0?0,
  8. RASAGILIN [Interacting]
     Active Substance: RASAGILINE MESYLATE
     Dosage: 1 MILLIGRAM DAILY;   1?0?0?0,
  9. TAPENTADOL [Interacting]
     Active Substance: TAPENTADOL
     Dosage: 100 MILLIGRAM DAILY;  1?0?1?0
  10. METOPROLOL. [Concomitant]
     Active Substance: METOPROLOL
     Dosage: 23.75 MILLIGRAM DAILY;  1?0?0?0
  11. PANTOPRAZOL [Concomitant]
     Active Substance: PANTOPRAZOLE SODIUM
     Dosage: 40 MG, NEEDS,
  12. CINNARIZIN/DIMENHYDRINAT [Concomitant]
     Dosage: 3 DOSAGE FORMS DAILY; 20|40 MG, 1?1?1?0,

REACTIONS (8)
  - Tremor [Unknown]
  - Pallor [Unknown]
  - Haematemesis [Unknown]
  - Hypertensive crisis [Unknown]
  - Product prescribing error [Unknown]
  - Labelled drug-drug interaction medication error [Unknown]
  - Asthenia [Unknown]
  - Hypertension [Unknown]
